FAERS Safety Report 13390638 (Version 1)
Quarter: 2017Q1

REPORT INFORMATION
  Report Type: Spontaneous
  Country: US (occurrence: US)
  Receive Date: 20170330
  Receipt Date: 20170330
  Transmission Date: 20170429
  Serious: Yes (Other)
  Sender: FDA-Public Use
  Company Number: None

PATIENT
  Sex: Female

DRUGS (2)
  1. CERELLE (DESOGESTREL) [Suspect]
     Active Substance: DESOGESTREL
     Indication: MENORRHAGIA
     Route: 048
  2. CERELLE (DESOGESTREL) [Suspect]
     Active Substance: DESOGESTREL
     Indication: MENSTRUATION IRREGULAR
     Route: 048

REACTIONS (11)
  - Pain in extremity [None]
  - Abdominal pain upper [None]
  - Mood swings [None]
  - Laziness [None]
  - Hyperhidrosis [None]
  - Muscle spasms [None]
  - Fatigue [None]
  - Feeling hot [None]
  - Product substitution issue [None]
  - Feeling abnormal [None]
  - Menorrhagia [None]
